FAERS Safety Report 6558302-9 (Version None)
Quarter: 2010Q1

REPORT INFORMATION
  Report Type: 
  Country: None (occurrence: None)
  Receive Date: 20100128
  Receipt Date: 20100128
  Transmission Date: 20100710
  Serious: No
  Sender: FDA-Public Use
  Company Number: None

PATIENT
  Sex: Female
  Weight: 67.1324 kg

DRUGS (4)
  1. CIPRO [Suspect]
     Indication: DIARRHOEA
     Dosage: 1 TWICE A DAY
     Dates: start: 20091230
  2. CIPRO [Suspect]
     Indication: GASTROENTERITIS BACTERIAL
     Dosage: 1 TWICE A DAY
     Dates: start: 20091230
  3. CIPRO [Suspect]
     Indication: DIARRHOEA
     Dosage: 1 TWICE A DAY
     Dates: start: 20091231
  4. CIPRO [Suspect]
     Indication: GASTROENTERITIS BACTERIAL
     Dosage: 1 TWICE A DAY
     Dates: start: 20091231

REACTIONS (18)
  - ABDOMINAL PAIN UPPER [None]
  - ANXIETY [None]
  - CRYING [None]
  - DECREASED APPETITE [None]
  - DEPRESSION [None]
  - HEART RATE INCREASED [None]
  - MYALGIA [None]
  - NAUSEA [None]
  - NERVOUS SYSTEM DISORDER [None]
  - NIGHTMARE [None]
  - PAIN IN EXTREMITY [None]
  - PALPITATIONS [None]
  - PARAESTHESIA [None]
  - PARANOIA [None]
  - PRURITUS [None]
  - RASH [None]
  - SLEEP DISORDER [None]
  - SOMNOLENCE [None]
